FAERS Safety Report 5965287-2 (Version None)
Quarter: 2008Q4

REPORT INFORMATION
  Report Type: 
  Country: None (occurrence: None)
  Receive Date: 20081124
  Receipt Date: 20081124
  Transmission Date: 20090506
  Serious: No
  Sender: FDA-Public Use
  Company Number: None

PATIENT
  Age: 59 Year
  Sex: Female
  Weight: 59.8748 kg

DRUGS (1)
  1. BUDEPRION XL 300 MG 300 MG [Suspect]
     Indication: DEPRESSION
     Dosage: 300 MG QD PO
     Route: 048
     Dates: start: 20080501, end: 20080801

REACTIONS (5)
  - DEPRESSION [None]
  - DRUG EFFECT DECREASED [None]
  - INSOMNIA [None]
  - PARADOXICAL DRUG REACTION [None]
  - THERAPEUTIC RESPONSE UNEXPECTED WITH DRUG SUBSTITUTION [None]
